FAERS Safety Report 5496453-0 (Version None)
Quarter: 2007Q4

REPORT INFORMATION
  Report Type: 
  Country: None (occurrence: None)
  Receive Date: 20071025
  Receipt Date: 20071015
  Transmission Date: 20080405
  Serious: Yes (Hospitalization)
  Sender: FDA-Public Use
  Company Number: US-ELI_LILLY_AND_COMPANY-US200710003945

PATIENT
  Age: 54 Year
  Sex: Male

DRUGS (3)
  1. CAPREOMYCIN SULFATE [Suspect]
     Indication: PULMONARY TUBERCULOSIS
  2. CYCLOSERINE [Concomitant]
     Indication: PULMONARY TUBERCULOSIS
  3. PYRAZINAMIDE [Concomitant]
     Indication: PULMONARY TUBERCULOSIS

REACTIONS (6)
  - BETA 2 MICROGLOBULIN URINE INCREASED [None]
  - BLOOD ALDOSTERONE INCREASED [None]
  - BLOOD CALCIUM DECREASED [None]
  - BLOOD PHOSPHORUS DECREASED [None]
  - HYPOMAGNESAEMIA [None]
  - RENIN INCREASED [None]
